FAERS Safety Report 4729180-5 (Version None)
Quarter: 2005Q3

REPORT INFORMATION
  Report Type: 
  Country: None (occurrence: None)
  Receive Date: 20050729
  Receipt Date: 20040622
  Transmission Date: 20060218
  Serious: No
  Sender: FDA-Public Use
  Company Number: US-GLAXOSMITHKLINE-A0515599A

PATIENT
  Sex: Female

DRUGS (4)
  1. IMITREX [Suspect]
     Indication: MIGRAINE
     Route: 048
  2. ZETIA [Concomitant]
  3. THYROID TAB [Concomitant]
  4. DEPAKOTE [Concomitant]

REACTIONS (2)
  - DYSTONIA [None]
  - EYE SWELLING [None]
